FAERS Safety Report 11846978 (Version 1)
Quarter: 2015Q4

REPORT INFORMATION
  Report Type: Spontaneous
  Country: FR (occurrence: FR)
  Receive Date: 20151217
  Receipt Date: 20151217
  Transmission Date: 20160305
  Serious: Yes (Hospitalization)
  Sender: FDA-Public Use
  Company Number: FR-CONCORDIA PHARMACEUTICALS INC.-CO-PL-FR-2015-409

PATIENT
  Age: 62 Year
  Sex: Female

DRUGS (6)
  1. CONDROSULF [Concomitant]
     Active Substance: CHONDROITIN SULFATE (CHICKEN)
  2. LODINE [Concomitant]
     Active Substance: ETODOLAC
  3. COLTRAMYL [Concomitant]
     Active Substance: THIOCOLCHICOSIDE
  4. PLAQUENIL [Suspect]
     Active Substance: HYDROXYCHLOROQUINE SULFATE
     Indication: PRODUCT USED FOR UNKNOWN INDICATION
     Route: 048
     Dates: start: 20151001, end: 20151020
  5. ESBERIVEN [Concomitant]
     Active Substance: TROXERUTIN
  6. LAMISIL [Concomitant]
     Active Substance: TERBINAFINE HYDROCHLORIDE
     Dates: start: 201501, end: 201507

REACTIONS (1)
  - Pancreatitis [Recovering/Resolving]

NARRATIVE: CASE EVENT DATE: 20151020
